FAERS Safety Report 6830550-X (Version None)
Quarter: 2010Q3

REPORT INFORMATION
  Report Type: 
  Country: None (occurrence: None)
  Receive Date: 20100709
  Receipt Date: 20100709
  Transmission Date: 20110219
  Serious: No
  Sender: FDA-Public Use
  Company Number: None

PATIENT
  Age: 33 Year
  Sex: Female
  Weight: 102.0593 kg

DRUGS (2)
  1. XENICAL [Suspect]
     Indication: WEIGHT CONTROL
     Dosage: 3 X'S DAY
  2. ALLI [Suspect]
     Indication: WEIGHT CONTROL
     Dosage: 3 X'S DAY

REACTIONS (1)
  - HEPATIC MASS [None]
